FAERS Safety Report 7453008-6 (Version None)
Quarter: 2011Q2

REPORT INFORMATION
  Report Type: 
  Country: None (occurrence: None)
  Receive Date: 20110502
  Receipt Date: 20110103
  Transmission Date: 20111010
  Serious: No
  Sender: FDA-Public Use
  Company Number: US-ASTRAZENECA-2010SE60892

PATIENT
  Age: 50 Year
  Sex: Male

DRUGS (1)
  1. NEXIUM [Suspect]
     Route: 048

REACTIONS (5)
  - BRONCHITIS [None]
  - INCORRECT DOSE ADMINISTERED [None]
  - TENSION HEADACHE [None]
  - INFLUENZA [None]
  - SINUS DISORDER [None]
